FAERS Safety Report 24449699 (Version 1)
Quarter: 2024Q4

REPORT INFORMATION
  Report Type: Spontaneous
  Country: US (occurrence: None)
  Receive Date: 20241016
  Receipt Date: 20241016
  Transmission Date: 20250115
  Serious: Yes (Hospitalization)
  Sender: Public
  Company Number: None

PATIENT
  Age: 71 Year
  Sex: Male
  Weight: 82 kg

DRUGS (2)
  1. APIXABAN [Suspect]
     Active Substance: APIXABAN
     Indication: Atrial fibrillation
     Dosage: FREQUENCY : TWICE A DAY;?OTHER ROUTE : OTHER;?
     Route: 050
     Dates: start: 20230811, end: 20230830
  2. ASPIRIN [Suspect]
     Active Substance: ASPIRIN
     Dosage: OTHER FREQUENCY : ONCE;?
     Route: 048
     Dates: start: 20230727

REACTIONS (1)
  - Gastrointestinal haemorrhage [None]

NARRATIVE: CASE EVENT DATE: 20230823
